FAERS Safety Report 14880033 (Version 1)
Quarter: 2018Q2

REPORT INFORMATION
  Report Type: Spontaneous
  Country: DE (occurrence: DE)
  Receive Date: 20180511
  Receipt Date: 20180511
  Transmission Date: 20180711
  Serious: Yes (Other)
  Sender: FDA-Public Use
  Company Number: DE-AUROBINDO-AUR-APL-2018-025022

PATIENT
  Age: 1 Day
  Sex: Male
  Weight: 3.35 kg

DRUGS (7)
  1. BECLOMET                           /00212602/ [Concomitant]
     Indication: HYPERSENSITIVITY
     Dosage: UNK
     Route: 064
  2. CETIRIZINE [Concomitant]
     Active Substance: CETIRIZINE HYDROCHLORIDE
     Indication: HYPERSENSITIVITY
     Dosage: ()
     Route: 064
     Dates: start: 20170103, end: 20170917
  3. BECLOMET                           /00212602/ [Concomitant]
     Indication: ASTHMA
     Dosage: ()
     Route: 064
  4. WELEDA HEUSCHNUPFENSPRAY [Concomitant]
     Indication: HYPERSENSITIVITY
     Dosage: ()
     Route: 064
  5. VENLAFAXINE [Suspect]
     Active Substance: VENLAFAXINE HYDROCHLORIDE
     Indication: DEPRESSION
     Dosage: 75 [MG/D ]/ ALTERNATING 37.5 AND 75 MG/D ()
     Route: 064
     Dates: start: 20170103, end: 20170917
  6. L-THYROX [Concomitant]
     Active Substance: LEVOTHYROXINE SODIUM
     Indication: HYPOTHYROIDISM
     Dosage: 75 [?G/D ]
     Route: 064
     Dates: start: 20170103, end: 20170917
  7. WELEDA HEUSCHNUPFENSPRAY [Concomitant]
     Dosage: ()
     Route: 064

REACTIONS (8)
  - Foetal exposure during pregnancy [Unknown]
  - Respiratory disorder neonatal [Recovered/Resolved]
  - Myoclonus [Recovered/Resolved]
  - Agitation neonatal [Recovered/Resolved]
  - Premature baby [Recovered/Resolved]
  - Infantile apnoea [Recovered/Resolved]
  - Bradycardia neonatal [Recovered/Resolved]
  - Temperature regulation disorder [Recovered/Resolved]

NARRATIVE: CASE EVENT DATE: 20170917
